FAERS Safety Report 5835446-8 (Version None)
Quarter: 2008Q3

REPORT INFORMATION
  Report Type: 
  Country: None (occurrence: None)
  Receive Date: 20080804
  Receipt Date: 20080718
  Transmission Date: 20090109
  Serious: Yes (Death, Other)
  Sender: FDA-Public Use
  Company Number: A-US2008-21317

PATIENT
  Age: 3 Year
  Sex: Male

DRUGS (1)
  1. TRACLEER [Suspect]
     Indication: PULMONARY HYPERTENSION
     Dosage: UNK, UNK, ORAL
     Route: 048

REACTIONS (8)
  - ALANINE AMINOTRANSFERASE INCREASED [None]
  - ASPARTATE AMINOTRANSFERASE INCREASED [None]
  - BLOOD BILIRUBIN INCREASED [None]
  - CARDIAC FAILURE CONGESTIVE [None]
  - CARDIAC OUTPUT DECREASED [None]
  - LIVER FUNCTION TEST ABNORMAL [None]
  - MITRAL VALVE INCOMPETENCE [None]
  - SEPSIS [None]
